FAERS Safety Report 19133609 (Version 1)
Quarter: 2021Q2

REPORT INFORMATION
  Report Type: Spontaneous
  Country: US (occurrence: US)
  Receive Date: 20210414
  Receipt Date: 20210414
  Transmission Date: 20210717
  Serious: No
  Sender: FDA-Public Use
  Company Number: None

PATIENT
  Age: 34 Year
  Sex: Male
  Weight: 58.5 kg

DRUGS (1)
  1. ILEVRO [Suspect]
     Active Substance: NEPAFENAC
     Indication: PROCEDURAL PAIN
     Dosage: ?          OTHER STRENGTH:PERCENT;QUANTITY:2 DROP(S);?
     Route: 047
     Dates: start: 20210120, end: 20210121

REACTIONS (3)
  - Paradoxical drug reaction [None]
  - Drug ineffective [None]
  - Pain [None]

NARRATIVE: CASE EVENT DATE: 20210120
